FAERS Safety Report 7158189-X (Version None)
Quarter: 2010Q4

REPORT INFORMATION
  Report Type: 
  Country: None (occurrence: None)
  Receive Date: 20101214
  Receipt Date: 20100318
  Transmission Date: 20110411
  Serious: No
  Sender: FDA-Public Use
  Company Number: US-ASTRAZENECA-2010SE12042

PATIENT
  Sex: Male

DRUGS (4)
  1. CRESTOR [Suspect]
     Indication: BLOOD CHOLESTEROL INCREASED
     Route: 048
     Dates: start: 20050101
  2. CRESTOR [Suspect]
     Route: 048
     Dates: start: 20100201
  3. CRESTOR [Suspect]
     Route: 048
  4. ASPIRIN [Concomitant]

REACTIONS (5)
  - CATARACT [None]
  - CORNEAL OPACITY [None]
  - DRUG INEFFECTIVE [None]
  - EYE PRURITUS [None]
  - LACRIMATION INCREASED [None]
